FAERS Safety Report 6496575-1 (Version None)
Quarter: 2009Q4

REPORT INFORMATION
  Report Type: 
  Country: None (occurrence: None)
  Receive Date: 20091210
  Receipt Date: 20091125
  Transmission Date: 20100525
  Serious: Yes (Hospitalization)
  Sender: FDA-Public Use
  Company Number: DSJ-2009-15789

PATIENT
  Age: 72 Year
  Sex: Male

DRUGS (11)
  1. BENICAR [Suspect]
     Indication: HYPERTENSION
     Dosage: 40 MG (40 MG,1 IN 1 D),PER ORAL
     Route: 048
     Dates: start: 20051221, end: 20091020
  2. ISOSORBIDE MONONITRATE [Concomitant]
  3. HYDRALAZINE HCL [Concomitant]
  4. FUROSEMIDE [Concomitant]
  5. SIMVASTATIN [Concomitant]
  6. CLOPIDOGREL [Concomitant]
  7. IRON         (IRON) [Concomitant]
  8. FOLIC ACID [Concomitant]
  9. INSULIN           (INSULIN) [Concomitant]
  10. BUPROPION HCL [Concomitant]
  11. ALPRAZOLAM [Concomitant]

REACTIONS (2)
  - ANGINA PECTORIS [None]
  - HAEMORRHAGE [None]
